FAERS Safety Report 6272353-3 (Version None)
Quarter: 2009Q3

REPORT INFORMATION
  Report Type: 
  Country: None (occurrence: None)
  Receive Date: 20090717
  Receipt Date: 20090707
  Transmission Date: 20100115
  Serious: Yes (Other)
  Sender: FDA-Public Use
  Company Number: US-JNJFOC-20090401003

PATIENT
  Sex: Female
  Weight: 74.62 kg

DRUGS (6)
  1. REMICADE [Suspect]
     Indication: RHEUMATOID ARTHRITIS
     Dosage: DOSE NOW REPORTED AS 100-600 MG
     Route: 042
     Dates: start: 20040601
  2. CELEBREX [Concomitant]
     Indication: RHEUMATOID ARTHRITIS
     Route: 048
  3. MULTI-VITAMINS [Concomitant]
     Route: 048
  4. CALCIUM [Concomitant]
     Route: 048
  5. FOLIC ACID [Concomitant]
     Route: 042
  6. FLUVOXAMINE MALEATE [Concomitant]
     Route: 048

REACTIONS (4)
  - ANXIETY [None]
  - DRUG EXPOSURE DURING PREGNANCY [None]
  - GESTATIONAL DIABETES [None]
  - OBSESSIVE-COMPULSIVE DISORDER [None]
